FAERS Safety Report 11191175 (Version 2)
Quarter: 2015Q3

REPORT INFORMATION
  Report Type: Spontaneous
  Country: US (occurrence: US)
  Receive Date: 20150615
  Receipt Date: 20150831
  Transmission Date: 20151125
  Serious: No
  Sender: FDA-Public Use
  Company Number: US-CELGENEUS-USA-2015051023

PATIENT
  Age: 52 Year
  Sex: Female

DRUGS (1)
  1. OTEZLA [Suspect]
     Active Substance: APREMILAST
     Indication: PSORIASIS
     Dosage: 60 MILLIGRAM
     Route: 048
     Dates: start: 20150417, end: 20150703

REACTIONS (5)
  - Eating disorder [Unknown]
  - Abdominal discomfort [Unknown]
  - Malaise [Unknown]
  - Diarrhoea [Unknown]
  - Mood swings [Unknown]

NARRATIVE: CASE EVENT DATE: 2015
